FAERS Safety Report 16277307 (Version 1)
Quarter: 2019Q2

REPORT INFORMATION
  Report Type: Spontaneous
  Country: US (occurrence: US)
  Receive Date: 20190506
  Receipt Date: 20190506
  Transmission Date: 20190711
  Serious: Yes (Disabling)
  Sender: FDA-Public Use
  Company Number: None

PATIENT
  Age: 29 Year
  Sex: Male
  Weight: 78.75 kg

DRUGS (1)
  1. CIPROFLOXACIN. [Suspect]
     Active Substance: CIPROFLOXACIN
     Indication: PROSTATE INFECTION
     Dates: start: 20180815, end: 20180829

REACTIONS (13)
  - Mitochondrial cytopathy [None]
  - Skin atrophy [None]
  - Arthralgia [None]
  - Tendon pain [None]
  - Depression [None]
  - Dyspepsia [None]
  - Vision blurred [None]
  - Nail discolouration [None]
  - Feeling abnormal [None]
  - Anxiety [None]
  - Headache [None]
  - Peripheral coldness [None]
  - Atrophy [None]

NARRATIVE: CASE EVENT DATE: 20180904
